FAERS Safety Report 9700103 (Version 1)
Quarter: 2013Q4

REPORT INFORMATION
  Report Type: Spontaneous
  Country: US (occurrence: US)
  Receive Date: 20131121
  Receipt Date: 20131121
  Transmission Date: 20140711
  Serious: Yes (Death, Other)
  Sender: FDA-Public Use
  Company Number: US-JNJFOC-20131107452

PATIENT
  Sex: 0

DRUGS (4)
  1. INFANT^S TYLENOL [Suspect]
     Route: 048
  2. INFANT^S TYLENOL [Suspect]
     Indication: PRODUCT USED FOR UNKNOWN INDICATION
     Route: 048
  3. CHILDREN^S TYLENOL [Suspect]
     Route: 065
  4. CHILDREN^S TYLENOL [Suspect]
     Indication: PRODUCT USED FOR UNKNOWN INDICATION
     Route: 065

REACTIONS (2)
  - Liver injury [Fatal]
  - Toxicity to various agents [Fatal]
